FAERS Safety Report 12607986 (Version 1)
Quarter: 2016Q3

REPORT INFORMATION
  Report Type: Spontaneous
  Country: BR (occurrence: BR)
  Receive Date: 20160729
  Receipt Date: 20160729
  Transmission Date: 20161109
  Serious: Yes (Death)
  Sender: FDA-Public Use
  Company Number: PHHY2016BR103125

PATIENT
  Sex: Male
  Weight: 52 kg

DRUGS (1)
  1. FORASEQ [Suspect]
     Active Substance: BUDESONIDE\FORMOTEROL FUMARATE
     Indication: PNEUMONIA
     Dosage: UNK, BID (IN THE MORNING AND IN THE AFTERNOON)
     Route: 055

REACTIONS (6)
  - Metastases to bone [Fatal]
  - Product use issue [Unknown]
  - Cardiogenic shock [Fatal]
  - Respiratory arrest [Fatal]
  - Prostate cancer [Fatal]
  - Cardiac disorder [Fatal]
